FAERS Safety Report 5720376-2 (Version None)
Quarter: 2008Q2

REPORT INFORMATION
  Report Type: 
  Country: None (occurrence: None)
  Receive Date: 20080428
  Receipt Date: 20080416
  Transmission Date: 20081010
  Serious: Yes (Other)
  Sender: FDA-Public Use
  Company Number: JP-PFIZER INC-2008034134

PATIENT
  Age: 72 Year
  Sex: Female

DRUGS (2)
  1. HYSRON-H200 [Suspect]
     Indication: METASTASES TO BONE
     Dosage: DAILY DOSE:1200MG-FREQ:DAILY
     Route: 048
     Dates: start: 20020223, end: 20060515
  2. AREDIA [Suspect]
     Indication: METASTASES TO BONE
     Route: 042
     Dates: start: 20020223, end: 20060426

REACTIONS (1)
  - OSTEONECROSIS [None]
